FAERS Safety Report 19417626 (Version 1)
Quarter: 2021Q2

REPORT INFORMATION
  Report Type: Spontaneous
  Country: US (occurrence: US)
  Receive Date: 20210615
  Receipt Date: 20210615
  Transmission Date: 20210717
  Serious: Yes (Hospitalization, Other)
  Sender: FDA-Public Use
  Company Number: US-MACLEODS PHARMACEUTICALS US LTD-MAC2021031498

PATIENT

DRUGS (2)
  1. PROPOXYPHENE NAPSYLATE [Concomitant]
     Active Substance: PROPOXYPHENE NAPSYLATE
     Indication: HERPES ZOSTER
     Dosage: 100 MILLIGRAM, QID
     Route: 065
  2. ACYCLOVIR. [Suspect]
     Active Substance: ACYCLOVIR
     Indication: HERPES ZOSTER
     Dosage: 800 MILLIGRAM, FIVE TIMES PER DAY
     Route: 048

REACTIONS (14)
  - Generalised tonic-clonic seizure [Recovering/Resolving]
  - Confusional state [Recovering/Resolving]
  - Drug level increased [Recovering/Resolving]
  - Oliguria [Recovering/Resolving]
  - Blood creatinine increased [Recovered/Resolved]
  - Diverticulitis [Recovering/Resolving]
  - Somnolence [Recovering/Resolving]
  - Abdominal pain lower [Recovering/Resolving]
  - Lethargy [Recovering/Resolving]
  - Acute kidney injury [Recovering/Resolving]
  - Coma [Recovering/Resolving]
  - Asthenia [Recovering/Resolving]
  - Depressed level of consciousness [Recovering/Resolving]
  - Blood urea increased [Recovering/Resolving]
